FAERS Safety Report 24065377 (Version 1)
Quarter: 2024Q3

REPORT INFORMATION
  Report Type: Spontaneous
  Country: US (occurrence: US)
  Receive Date: 20240709
  Receipt Date: 20240709
  Transmission Date: 20241017
  Serious: No
  Sender: ALNYLAM PHARMACEUTICALS
  Company Number: US-ALNYLAM PHARMACEUTICALS, INC.-ALN-2024-003705

PATIENT

DRUGS (3)
  1. AMVUTTRA [Suspect]
     Active Substance: VUTRISIRAN
     Indication: Product used for unknown indication
     Dosage: UNK, Q3M
     Route: 065
  2. VITAMIN A [Concomitant]
     Active Substance: VITAMIN A
     Indication: Supplementation therapy
     Dosage: 1 DOSAGE FORM, BID
     Route: 065
  3. VITAMIN A [Concomitant]
     Active Substance: VITAMIN A
     Dosage: 2 DOSAGE FORM, BID
     Route: 065
     Dates: start: 202403

REACTIONS (2)
  - Vision blurred [Unknown]
  - Vitreous floaters [Unknown]
